FAERS Safety Report 10618214 (Version 1)
Quarter: 2014Q4

REPORT INFORMATION
  Report Type: Spontaneous
  Country: US (occurrence: US)
  Receive Date: 20141202
  Receipt Date: 20141202
  Transmission Date: 20150529
  Serious: No
  Sender: FDA-Public Use
  Company Number: US-009507513-1411USA009776

PATIENT
  Age: 23 Year
  Sex: Female

DRUGS (1)
  1. NUVARING [Suspect]
     Active Substance: ETHINYL ESTRADIOL\ETONOGESTREL
     Indication: MENSTRUAL DISORDER
     Dosage: UNK
     Route: 067
     Dates: start: 2009

REACTIONS (5)
  - Abdominal discomfort [Unknown]
  - Headache [Unknown]
  - Drug administration error [Unknown]
  - Metrorrhagia [Unknown]
  - Vomiting [Unknown]

NARRATIVE: CASE EVENT DATE: 2009
